FAERS Safety Report 13632460 (Version 1)
Quarter: 2017Q2

REPORT INFORMATION
  Report Type: Spontaneous
  Country: US (occurrence: US)
  Receive Date: 20170531
  Receipt Date: 20170531
  Transmission Date: 20170830
  Serious: No
  Sender: FDA-Public Use
  Company Number: US-ASTELLAS-1459563

PATIENT
  Sex: Male

DRUGS (5)
  1. TARCEVA [Suspect]
     Active Substance: ERLOTINIB HYDROCHLORIDE
     Indication: LUNG NEOPLASM MALIGNANT
     Route: 048
     Dates: start: 20140718
  2. TERAZOSIN [Concomitant]
     Active Substance: TERAZOSIN\TERAZOSIN HYDROCHLORIDE
  3. ALBUTEROL. [Concomitant]
     Active Substance: ALBUTEROL
  4. DOXYCYCLINE. [Concomitant]
     Active Substance: DOXYCYCLINE
  5. LASIX [Concomitant]
     Active Substance: FUROSEMIDE

REACTIONS (2)
  - Rash generalised [Unknown]
  - Abdominal discomfort [Unknown]
